FAERS Safety Report 4469062-X (Version None)
Quarter: 2004Q4

REPORT INFORMATION
  Report Type: 
  Country: None (occurrence: None)
  Receive Date: 20041001
  Receipt Date: 20040728
  Transmission Date: 20050328
  Serious: Yes (Hospitalization)
  Sender: FDA-Public Use
  Company Number: OSCN-NO-0407S-0195

PATIENT
  Age: 54 Year
  Sex: Male
  Weight: 79 kg

DRUGS (17)
  1. OMNISCAN [Suspect]
     Dosage: 15 ML, SINGLE DOSE, I.V.
     Route: 042
     Dates: start: 20040616, end: 20040616
  2. OMNIPAQUE 180 [Suspect]
     Dosage: 100 ML, SINGLE DOSE, I.V.
     Route: 042
     Dates: start: 20040615, end: 20040615
  3. CEFOPERAZONE SODIUM, SULBACTAM SODIUM (SULPERAZON) [Concomitant]
  4. HALCION [Concomitant]
  5. ALFACALCIDOL (ALFAROL) [Concomitant]
  6. ALLOPURINOL [Concomitant]
  7. SENNA,  ACHILLEA MILLEFOLIUM (ALOSENN) [Concomitant]
  8. TEPRENONE (SELBEX) [Concomitant]
  9. EPALRESTAT (KINEDAK) [Concomitant]
  10. CALCIUM CARBONATE (TANKARU) [Concomitant]
  11. MECOBALAMIN (METHYLCOBAL) [Concomitant]
  12. FAMOTIDINE (GASTER D) [Concomitant]
  13. BERAPROST SODIUM (DORNER) [Concomitant]
  14. ACETYLSALICYLIC ACID (BAYASPIRIN) [Concomitant]
  15. ETHYL ICOSAPENTATE (EPADEL S) [Concomitant]
  16. WARFARIN SODIUM [Concomitant]
  17. PENTAZOCINE (PENTAGIN) [Concomitant]

REACTIONS (11)
  - AMMONIA INCREASED [None]
  - CARDIAC FAILURE [None]
  - DEPRESSED LEVEL OF CONSCIOUSNESS [None]
  - EJECTION FRACTION DECREASED [None]
  - HAEMODIALYSIS [None]
  - HEPATIC ENCEPHALOPATHY [None]
  - HEPATITIS CHOLESTATIC [None]
  - INCOHERENT [None]
  - ISCHAEMIC HEPATITIS [None]
  - STATUS ASTHMATICUS [None]
  - VOLUME BLOOD DECREASED [None]
